FAERS Safety Report 6386396-2 (Version None)
Quarter: 2009Q3

REPORT INFORMATION
  Report Type: 
  Country: None (occurrence: None)
  Receive Date: 20090930
  Receipt Date: 20090930
  Transmission Date: 20100115
  Serious: Yes (Life-Threatening)
  Sender: FDA-Public Use
  Company Number: None

PATIENT
  Age: 42 Year
  Sex: Female
  Weight: 84.369 kg

DRUGS (1)
  1. VENOFER [Suspect]
     Indication: IRON DEFICIENCY ANAEMIA
     Dosage: 500 MG IV
     Route: 042
     Dates: start: 20090814, end: 20090814

REACTIONS (10)
  - ARTHRALGIA [None]
  - BURNING SENSATION [None]
  - CHILLS [None]
  - DIARRHOEA [None]
  - DRUG HYPERSENSITIVITY [None]
  - HEADACHE [None]
  - JOINT SWELLING [None]
  - OBSTRUCTIVE AIRWAYS DISORDER [None]
  - OEDEMA PERIPHERAL [None]
  - RASH [None]
